FAERS Safety Report 24838588 (Version 1)
Quarter: 2025Q1

REPORT INFORMATION
  Report Type: Report from Study
  Country: GB (occurrence: GB)
  Receive Date: 20250113
  Receipt Date: 20250113
  Transmission Date: 20250409
  Serious: Yes (Other)
  Sender: ESPERION THERAPEUTICS
  Company Number: GB-DAIICHI SANKYO EUROPE GMBH-DS-2025-118624-GB

PATIENT

DRUGS (1)
  1. BEMPEDOIC ACID\EZETIMIBE [Suspect]
     Active Substance: BEMPEDOIC ACID\EZETIMIBE
     Indication: Dyslipidaemia
     Dosage: 180/10 MG, QD
     Route: 048
     Dates: start: 202307, end: 202409

REACTIONS (1)
  - Acute kidney injury [Recovered/Resolved]

NARRATIVE: CASE EVENT DATE: 20240701
